FAERS Safety Report 24183711 (Version 1)
Quarter: 2024Q3

REPORT INFORMATION
  Report Type: Spontaneous
  Country: US (occurrence: None)
  Receive Date: 20240806
  Receipt Date: 20240806
  Transmission Date: 20241016
  Serious: Yes (Hospitalization)
  Sender: Public
  Company Number: None

PATIENT
  Age: 57 Year
  Sex: Male

DRUGS (1)
  1. POMALYST [Suspect]
     Active Substance: POMALIDOMIDE
     Indication: Kaposi^s sarcoma
     Dosage: 3MG QD ORAL?
     Route: 048
     Dates: start: 20180716, end: 202003

REACTIONS (4)
  - Vomiting [None]
  - Syncope [None]
  - Rash [None]
  - Eosinophilia [None]

NARRATIVE: CASE EVENT DATE: 20191106
